FAERS Safety Report 23267692 (Version 1)
Quarter: 2023Q4

REPORT INFORMATION
  Report Type: Spontaneous
  Country: US (occurrence: None)
  Receive Date: 20231205
  Receipt Date: 20231205
  Transmission Date: 20240110
  Serious: Yes (Other)
  Sender: FDA-Public Use
  Company Number: None

PATIENT
  Age: 35 Year
  Sex: Female
  Weight: 72 kg

DRUGS (4)
  1. MAVENCLAD [Suspect]
     Active Substance: CLADRIBINE
     Indication: Multiple sclerosis
     Dosage: OTHER FREQUENCY : CYCLES;?
     Route: 048
     Dates: start: 20220418
  2. VITAMIN D3 [Concomitant]
     Active Substance: CHOLECALCIFEROL
  3. levonorgestrel / EE [Concomitant]
  4. VITAMINS [Concomitant]
     Active Substance: VITAMINS

REACTIONS (1)
  - Graves^ disease [None]

NARRATIVE: CASE EVENT DATE: 20230329
